FAERS Safety Report 9784509 (Version 1)
Quarter: 2013Q4

REPORT INFORMATION
  Report Type: Report from Study
  Country: JP (occurrence: JP)
  Receive Date: 20131226
  Receipt Date: 20131226
  Transmission Date: 20140711
  Serious: Yes (Death, Other)
  Sender: FDA-Public Use
  Company Number: JP-TAKEDA-2013TJP004124

PATIENT
  Age: 86 Year
  Sex: Male

DRUGS (4)
  1. ALOGLIPTIN [Suspect]
     Indication: TYPE 2 DIABETES MELLITUS
     Dosage: 25 MG, QD
     Route: 048
     Dates: start: 20120803, end: 20130412
  2. TAKEPRON [Concomitant]
     Dosage: UNK
     Route: 048
  3. DECADRON [Concomitant]
     Dosage: UNK
     Route: 048
  4. IRBETAN [Concomitant]
     Dosage: UNK
     Route: 048

REACTIONS (2)
  - Prostate cancer [Fatal]
  - Condition aggravated [Fatal]
